FAERS Safety Report 25422435 (Version 1)
Quarter: 2025Q2

REPORT INFORMATION
  Report Type: Spontaneous
  Country: US (occurrence: US)
  Receive Date: 20250611
  Receipt Date: 20250611
  Transmission Date: 20250716
  Serious: Yes (Other)
  Sender: MYLAN
  Company Number: US-MYLANLABS-2025M1049057

PATIENT
  Age: 38 Year
  Sex: Male

DRUGS (48)
  1. GABAPENTIN [Suspect]
     Active Substance: GABAPENTIN
     Indication: Burning mouth syndrome
  2. GABAPENTIN [Suspect]
     Active Substance: GABAPENTIN
     Route: 065
  3. GABAPENTIN [Suspect]
     Active Substance: GABAPENTIN
     Route: 065
  4. GABAPENTIN [Suspect]
     Active Substance: GABAPENTIN
  5. DEXAMETHASONE [Suspect]
     Active Substance: DEXAMETHASONE
     Indication: Burning mouth syndrome
  6. DEXAMETHASONE [Suspect]
     Active Substance: DEXAMETHASONE
     Route: 048
  7. DEXAMETHASONE [Suspect]
     Active Substance: DEXAMETHASONE
     Route: 048
  8. DEXAMETHASONE [Suspect]
     Active Substance: DEXAMETHASONE
  9. LYRICA [Suspect]
     Active Substance: PREGABALIN
     Indication: Burning mouth syndrome
  10. LYRICA [Suspect]
     Active Substance: PREGABALIN
     Route: 065
  11. LYRICA [Suspect]
     Active Substance: PREGABALIN
     Route: 065
  12. LYRICA [Suspect]
     Active Substance: PREGABALIN
  13. CANNABIDIOL [Suspect]
     Active Substance: CANNABIDIOL
     Indication: Burning mouth syndrome
  14. CANNABIDIOL [Suspect]
     Active Substance: CANNABIDIOL
     Route: 065
  15. CANNABIDIOL [Suspect]
     Active Substance: CANNABIDIOL
     Route: 065
  16. CANNABIDIOL [Suspect]
     Active Substance: CANNABIDIOL
  17. AMITRIPTYLINE [Suspect]
     Active Substance: AMITRIPTYLINE
     Indication: Burning mouth syndrome
     Dosage: 50 MILLIGRAM, BID
  18. AMITRIPTYLINE [Suspect]
     Active Substance: AMITRIPTYLINE
     Dosage: 50 MILLIGRAM, BID
  19. AMITRIPTYLINE [Suspect]
     Active Substance: AMITRIPTYLINE
     Dosage: 50 MILLIGRAM, BID
     Route: 065
  20. AMITRIPTYLINE [Suspect]
     Active Substance: AMITRIPTYLINE
     Dosage: 50 MILLIGRAM, BID
     Route: 065
  21. AMITRIPTYLINE [Suspect]
     Active Substance: AMITRIPTYLINE
     Dosage: 75 MILLIGRAM, BID
  22. AMITRIPTYLINE [Suspect]
     Active Substance: AMITRIPTYLINE
     Dosage: 75 MILLIGRAM, BID
  23. AMITRIPTYLINE [Suspect]
     Active Substance: AMITRIPTYLINE
     Dosage: 75 MILLIGRAM, BID
     Route: 065
  24. AMITRIPTYLINE [Suspect]
     Active Substance: AMITRIPTYLINE
     Dosage: 75 MILLIGRAM, BID
     Route: 065
  25. ALPHA LIPOIC ACID [Suspect]
     Active Substance: .ALPHA.-LIPOIC ACID
     Indication: Burning mouth syndrome
  26. ALPHA LIPOIC ACID [Suspect]
     Active Substance: .ALPHA.-LIPOIC ACID
     Route: 065
  27. ALPHA LIPOIC ACID [Suspect]
     Active Substance: .ALPHA.-LIPOIC ACID
     Route: 065
  28. ALPHA LIPOIC ACID [Suspect]
     Active Substance: .ALPHA.-LIPOIC ACID
  29. LIDOCAINE [Concomitant]
     Active Substance: LIDOCAINE
     Indication: Burning mouth syndrome
  30. LIDOCAINE [Concomitant]
     Active Substance: LIDOCAINE
     Route: 065
  31. LIDOCAINE [Concomitant]
     Active Substance: LIDOCAINE
     Route: 065
  32. LIDOCAINE [Concomitant]
     Active Substance: LIDOCAINE
  33. NYSTATIN [Concomitant]
     Active Substance: NYSTATIN
     Indication: Burning mouth syndrome
  34. NYSTATIN [Concomitant]
     Active Substance: NYSTATIN
     Route: 065
  35. NYSTATIN [Concomitant]
     Active Substance: NYSTATIN
     Route: 065
  36. NYSTATIN [Concomitant]
     Active Substance: NYSTATIN
  37. CAPSAICIN [Concomitant]
     Active Substance: CAPSAICIN
     Indication: Burning mouth syndrome
     Dosage: UNK, QID, WASHES
  38. CAPSAICIN [Concomitant]
     Active Substance: CAPSAICIN
     Dosage: UNK, QID, WASHES
     Route: 048
  39. CAPSAICIN [Concomitant]
     Active Substance: CAPSAICIN
     Dosage: UNK, QID, WASHES
     Route: 048
  40. CAPSAICIN [Concomitant]
     Active Substance: CAPSAICIN
     Dosage: UNK, QID, WASHES
  41. LITHIUM [Concomitant]
     Active Substance: LITHIUM
     Indication: Bipolar disorder
  42. LITHIUM [Concomitant]
     Active Substance: LITHIUM
     Route: 065
  43. LITHIUM [Concomitant]
     Active Substance: LITHIUM
     Route: 065
  44. LITHIUM [Concomitant]
     Active Substance: LITHIUM
  45. OXCARBAZEPINE [Concomitant]
     Active Substance: OXCARBAZEPINE
     Indication: Bipolar disorder
  46. OXCARBAZEPINE [Concomitant]
     Active Substance: OXCARBAZEPINE
     Route: 065
  47. OXCARBAZEPINE [Concomitant]
     Active Substance: OXCARBAZEPINE
     Route: 065
  48. OXCARBAZEPINE [Concomitant]
     Active Substance: OXCARBAZEPINE

REACTIONS (2)
  - Therapy non-responder [Unknown]
  - Off label use [Unknown]
